FAERS Safety Report 23083123 (Version 1)
Quarter: 2023Q4

REPORT INFORMATION
  Report Type: Spontaneous
  Country: GB (occurrence: GB)
  Receive Date: 20231019
  Receipt Date: 20231019
  Transmission Date: 20240110
  Serious: Yes (Other)
  Sender: FDA-Public Use
  Company Number: GB-MEDREICH PLC-MHP202309-003453

PATIENT
  Age: 44 Year
  Sex: Female

DRUGS (2)
  1. MIRTAZAPINE [Suspect]
     Active Substance: MIRTAZAPINE
     Indication: Anxiety
     Dosage: 15 MILLIGRAM
     Route: 048
  2. MIRTAZAPINE [Suspect]
     Active Substance: MIRTAZAPINE
     Dosage: 1.34 MILLIGRAM
     Route: 048

REACTIONS (28)
  - Suicidal ideation [Unknown]
  - Abdominal pain upper [Unknown]
  - Migraine [Unknown]
  - Mood swings [Unknown]
  - Food intolerance [Unknown]
  - Eye pain [Unknown]
  - Malaise [Unknown]
  - Balance disorder [Unknown]
  - Abdominal distension [Unknown]
  - Acne [Unknown]
  - Fluid retention [Unknown]
  - Neck pain [Unknown]
  - Hypovitaminosis [Unknown]
  - Hypertension [Unknown]
  - Nausea [Unknown]
  - Weight increased [Unknown]
  - Anxiety [Unknown]
  - Insomnia [Unknown]
  - Depression [Unknown]
  - Oropharyngeal pain [Unknown]
  - Diarrhoea [Unknown]
  - Headache [Unknown]
  - Myalgia [Unknown]
  - Urticaria [Unknown]
  - Lethargy [Unknown]
  - Dry mouth [Unknown]
  - Constipation [Unknown]
  - Nightmare [Unknown]
